FAERS Safety Report 20829629 (Version 5)
Quarter: 2022Q3

REPORT INFORMATION
  Report Type: Spontaneous
  Country: JP (occurrence: JP)
  Receive Date: 20220513
  Receipt Date: 20220831
  Transmission Date: 20221027
  Serious: Yes (Hospitalization)
  Sender: FDA-Public Use
  Company Number: JP-Eisai-202201221_LEN-EC_P_1

PATIENT
  Age: 70 Year
  Sex: Female

DRUGS (8)
  1. LENVATINIB [Suspect]
     Active Substance: LENVATINIB
     Indication: Endometrial cancer
     Route: 048
     Dates: start: 20220411, end: 20220417
  2. PEMBROLIZUMAB [Suspect]
     Active Substance: PEMBROLIZUMAB
     Indication: Endometrial cancer
     Route: 041
     Dates: start: 20220411
  3. LEVOFLOXACIN [Suspect]
     Active Substance: LEVOFLOXACIN
     Indication: Product used for unknown indication
     Dosage: DOSE AND FREQUENCY UNKNOWN
     Route: 048
     Dates: start: 20220415, end: 20220421
  4. ROSUVASTATIN [Concomitant]
     Active Substance: ROSUVASTATIN
     Indication: Product used for unknown indication
     Route: 048
  5. TENELIGLIPTIN [Concomitant]
     Active Substance: TENELIGLIPTIN
     Indication: Product used for unknown indication
     Dosage: PERORAL MEDICINE
     Route: 048
  6. MITIGLINIDE [Concomitant]
     Active Substance: MITIGLINIDE
     Indication: Product used for unknown indication
     Dosage: PERORAL MEDICINE
     Route: 048
  7. MAGNESIUM OXIDE [Concomitant]
     Active Substance: MAGNESIUM OXIDE
     Indication: Product used for unknown indication
     Dosage: PERORAL MEDICINE
     Route: 048
  8. AMLODIPINE [Concomitant]
     Active Substance: AMLODIPINE BESYLATE
     Indication: Product used for unknown indication
     Dosage: PERORAL MEDICINE
     Route: 048

REACTIONS (7)
  - Eyelid ptosis [Recovered/Resolved]
  - Myositis [Recovering/Resolving]
  - Myasthenia gravis [Recovering/Resolving]
  - Rash [Recovered/Resolved]
  - Dyspnoea [Recovered/Resolved]
  - Palpitations [Unknown]
  - Malaise [Recovered/Resolved]

NARRATIVE: CASE EVENT DATE: 20220417
